FAERS Safety Report 21332255 (Version 2)
Quarter: 2022Q4

REPORT INFORMATION
  Report Type: Spontaneous
  Country: US (occurrence: US)
  Receive Date: 20220914
  Receipt Date: 20221221
  Transmission Date: 20230113
  Serious: No
  Sender: FDA-Public Use
  Company Number: US-BIOGEN-2022BI01154717

PATIENT
  Sex: Male

DRUGS (2)
  1. PLEGRIDY [Suspect]
     Active Substance: PEGINTERFERON BETA-1A
     Indication: Multiple sclerosis
     Route: 050
     Dates: start: 20150527, end: 20220819
  2. PLEGRIDY [Suspect]
     Active Substance: PEGINTERFERON BETA-1A

REACTIONS (2)
  - Pyrexia [Unknown]
  - Chills [Unknown]
